FAERS Safety Report 19483177 (Version 5)
Quarter: 2021Q4

REPORT INFORMATION
  Report Type: Spontaneous
  Country: BR (occurrence: BR)
  Receive Date: 20210701
  Receipt Date: 20211110
  Transmission Date: 20220303
  Serious: Yes (Other)
  Sender: FDA-Public Use
  Company Number: BR-KOREA IPSEN PHARMA-2021-15954

PATIENT
  Age: 78 Year
  Sex: Male
  Weight: 68 kg

DRUGS (7)
  1. LANREOTIDE ACETATE [Suspect]
     Active Substance: LANREOTIDE ACETATE
     Indication: Neuroendocrine tumour
     Dosage: 120 MG EVERY 28 DAYS
     Route: 058
     Dates: start: 20210615
  2. CHELIDONIUM CH1 [Concomitant]
     Indication: Encephalopathy
     Dosage: 4 TABLETS PER DAY, ONGOING
     Route: 048
     Dates: start: 20210323
  3. THUYA OCCIDENTALIS CH1 [Concomitant]
     Indication: Encephalopathy
     Dosage: 4 TABLETS PER DAY, ONGOING
     Route: 048
     Dates: start: 20210323
  4. CARDUUS MARIANUS CH1 [Concomitant]
     Indication: Encephalopathy
     Dosage: 4 TABLETS PER DAY, ONGOING
     Route: 048
     Dates: start: 20210323
  5. SYNTHROID [Concomitant]
     Active Substance: LEVOTHYROXINE SODIUM
     Indication: Autoimmune thyroiditis
     Dosage: 1 TABLET PER DAY, ONGOING (STRENGTH: 120 MG)
     Route: 048
     Dates: start: 2017
  6. FUROSEMIDE [Concomitant]
     Active Substance: FUROSEMIDE
     Dosage: 1/2 TABLET PER DAY FOR 4 MONTHS
  7. ALLOPURINOL [Concomitant]
     Active Substance: ALLOPURINOL
     Indication: Blood uric acid abnormal
     Dosage: ONE TABLET PER DAY (STRENGTH: 300 MG)
     Dates: start: 2021

REACTIONS (5)
  - Faeces pale [Recovered/Resolved]
  - Faeces soft [Recovered/Resolved]
  - Injection site mass [Not Recovered/Not Resolved]
  - Injection site pruritus [Not Recovered/Not Resolved]
  - Injection site erythema [Not Recovered/Not Resolved]

NARRATIVE: CASE EVENT DATE: 20210624
